FAERS Safety Report 13005007 (Version 3)
Quarter: 2017Q1

REPORT INFORMATION
  Report Type: Spontaneous
  Country: US (occurrence: US)
  Receive Date: 20161207
  Receipt Date: 20170316
  Transmission Date: 20170428
  Serious: No
  Sender: FDA-Public Use
  Company Number: US-PFIZER INC-2016560345

PATIENT
  Age: 67 Year
  Sex: Female
  Weight: 82 kg

DRUGS (5)
  1. LATANOPROST. [Suspect]
     Active Substance: LATANOPROST
     Indication: GLAUCOMA
     Dosage: UNK
  2. VALIUM [Concomitant]
     Active Substance: DIAZEPAM
     Indication: ANXIETY
     Dosage: 10 MG, 2X/DAY AS NEEDED
     Dates: start: 1995
  3. TYLENOL WITH CODEINE [Concomitant]
     Active Substance: ACETAMINOPHEN\CODEINE PHOSPHATE
     Indication: PLEURITIC PAIN
     Dosage: 1 AT NIGHT
     Route: 048
     Dates: start: 1995
  4. ELIQUIS [Concomitant]
     Active Substance: APIXABAN
     Indication: CEREBROVASCULAR ACCIDENT
     Dosage: 5 MG, 2X/DAY
     Dates: start: 201511
  5. ELIQUIS [Concomitant]
     Active Substance: APIXABAN
     Indication: PULMONARY THROMBOSIS

REACTIONS (7)
  - Eye irritation [Unknown]
  - Eye pain [Unknown]
  - Drug ineffective [Unknown]
  - Panic attack [Unknown]
  - Nausea [Unknown]
  - Anxiety [Unknown]
  - Migraine [Unknown]
